FAERS Safety Report 6134470-8 (Version None)
Quarter: 2009Q1

REPORT INFORMATION
  Report Type: 
  Country: None (occurrence: None)
  Receive Date: 20090327
  Receipt Date: 20090317
  Transmission Date: 20090719
  Serious: Yes (Other)
  Sender: FDA-Public Use
  Company Number: US-PFIZER INC-2006087230

PATIENT
  Sex: Female
  Weight: 69 kg

DRUGS (9)
  1. PROVERA [Suspect]
     Indication: HORMONE REPLACEMENT THERAPY
     Dosage: UNK
     Route: 048
     Dates: start: 19980101, end: 20010101
  2. PROVERA [Suspect]
     Indication: MENOPAUSE
  3. MEDROXYPROGESTERONE AND MEDROXYPROGESTERONE ACETATE [Suspect]
     Indication: HORMONE REPLACEMENT THERAPY
     Dosage: UNK
     Route: 048
     Dates: start: 19980101, end: 20010101
  4. MEDROXYPROGESTERONE AND MEDROXYPROGESTERONE ACETATE [Suspect]
     Indication: MENOPAUSE
  5. PREMARIN [Suspect]
     Indication: HORMONE REPLACEMENT THERAPY
     Dosage: UNK
     Route: 065
     Dates: start: 19980101, end: 20010101
  6. PREMARIN [Suspect]
     Indication: MENOPAUSE
  7. MEDROXYPROGESTERONE [Suspect]
     Indication: MENOPAUSE
     Dosage: UNK
     Dates: start: 19980101, end: 20010101
  8. VICODIN [Concomitant]
     Indication: ARTHRALGIA
     Dosage: UNK
     Dates: start: 19980101
  9. VICODIN [Concomitant]
     Indication: BACK PAIN

REACTIONS (1)
  - BREAST CANCER FEMALE [None]
